FAERS Safety Report 22043990 (Version 1)
Quarter: 2023Q1

REPORT INFORMATION
  Report Type: Spontaneous
  Country: US (occurrence: US)
  Receive Date: 20230228
  Receipt Date: 20230228
  Transmission Date: 20230418
  Serious: No
  Sender: FDA-Public Use
  Company Number: US-TAKEDA-2023TUS016770

PATIENT
  Sex: Female

DRUGS (3)
  1. EXKIVITY [Suspect]
     Active Substance: MOBOCERTINIB
     Indication: Product used for unknown indication
     Dosage: 160 MILLIGRAM, QD
     Route: 065
  2. EXKIVITY [Suspect]
     Active Substance: MOBOCERTINIB
     Dosage: 120 MILLIGRAM, QD
     Route: 065
  3. EXKIVITY [Suspect]
     Active Substance: MOBOCERTINIB
     Dosage: 80 MILLIGRAM, QD
     Route: 065

REACTIONS (5)
  - Constipation [Unknown]
  - Onychomadesis [Unknown]
  - Rash [Unknown]
  - Dry skin [Unknown]
  - Diarrhoea [Unknown]
